FAERS Safety Report 24267763 (Version 3)
Quarter: 2024Q4

REPORT INFORMATION
  Report Type: Spontaneous
  Country: NL (occurrence: NL)
  Receive Date: 20240830
  Receipt Date: 20241010
  Transmission Date: 20250114
  Serious: Yes (Other)
  Sender: ASCEND
  Company Number: NL-Ascend Therapeutics US, LLC-2160994

PATIENT
  Age: 27 Year
  Sex: Male

DRUGS (7)
  1. ANDROGEL [Suspect]
     Active Substance: TESTOSTERONE
     Indication: Steroid therapy
  2. TESTOSTERONE [Suspect]
     Active Substance: TESTOSTERONE
  3. DICLOFENAC [Concomitant]
     Active Substance: DICLOFENAC
  4. CABOTEGRAVIR\RILPIVIRINE [Suspect]
     Active Substance: CABOTEGRAVIR\RILPIVIRINE
     Dates: start: 20230327
  5. CABOTEGRAVIR\RILPIVIRINE [Suspect]
     Active Substance: CABOTEGRAVIR\RILPIVIRINE
     Dates: start: 202303, end: 2023
  6. NANDROLONE [Suspect]
     Active Substance: NANDROLONE
  7. TRENBOLONE [Suspect]
     Active Substance: TRENBOLONE

REACTIONS (4)
  - Drug resistance [Unknown]
  - Drug interaction [Unknown]
  - Virologic failure [Recovering/Resolving]
  - Drug level decreased [Unknown]

NARRATIVE: CASE EVENT DATE: 20231129
